FAERS Safety Report 10373940 (Version 1)
Quarter: 2014Q1

REPORT INFORMATION
  Report Type: Spontaneous
  Country: US (occurrence: None)
  Receive Date: 20140306
  Receipt Date: 20140306
  Transmission Date: 20141002
  Serious: Yes (Hospitalization)
  Sender: FDA-Public Use
  Company Number: 163-21880-13013727

PATIENT
  Age: 75 Year
  Sex: Female
  Weight: 72.58 kg

DRUGS (14)
  1. REVLIMID (LENALIDOMIDE) (15 MILLIGRAM, CAPSULES) [Suspect]
     Indication: PLASMA CELL MYELOMA
     Route: 048
     Dates: start: 20120824, end: 20121019
  2. VELCADE (BORTEZOMIB) [Suspect]
     Dosage: UNKNOWN?66, 188
     Dates: end: 20121019
  3. DECADRON (DEXAMETHASONE) [Suspect]
     Indication: PRODUCT USED FOR UNKNOWN INDICATION
     Dosage: UNKNOWN
     Dates: end: 20121019
  4. ZOLEDRONIC ACID [Concomitant]
  5. SYNTHROID (LEVOTHYROXINE SODIUM) [Concomitant]
  6. BABY ASPIRIN (ACETYLSALICYLIC ACID) [Concomitant]
  7. ACYCLOVIR (ACICLOVIR) (ACICLOVIR) [Concomitant]
  8. K-TAB (POTASSIUM CHLORIDE) [Concomitant]
  9. LEVOTHYROXINE [Concomitant]
  10. OMEPRAZOLE [Concomitant]
  11. ONDANSETRON [Concomitant]
  12. OXYBUTYNIN [Concomitant]
  13. SERTRALINE [Concomitant]
  14. XALATAN (LATANOPROST) (EYE DROPS) [Concomitant]

REACTIONS (5)
  - Muscular weakness [None]
  - Pyrexia [None]
  - Neuropathy peripheral [None]
  - Diarrhoea [None]
  - Weight decreased [None]
